FAERS Safety Report 7116112-8 (Version None)
Quarter: 2010Q4

REPORT INFORMATION
  Report Type: 
  Country: None (occurrence: None)
  Receive Date: 20101122
  Receipt Date: 20101108
  Transmission Date: 20110411
  Serious: Yes (Hospitalization, Other)
  Sender: FDA-Public Use
  Company Number: PHHY2010BR76284

PATIENT
  Sex: Male

DRUGS (7)
  1. GALVUS MET [Suspect]
     Dosage: 850/50 MG
  2. DIOVAN AMLO FIX [Suspect]
     Dosage: 320/10 MG
  3. NATRILIX [Concomitant]
     Dosage: 1.5 MG, ONE TABLET A DAY
  4. CRESTOR [Concomitant]
     Indication: BLOOD CHOLESTEROL
     Dosage: ONE TABLET A DAY, 10 MG
  5. SERTRALINE HYDROCHLORIDE [Concomitant]
     Indication: DRUG ABUSE
     Dosage: 50 MG, ONE TABLET A DAY
  6. CLOPIDOGREL [Concomitant]
     Dosage: ONE TABLET A DAY
  7. GLIMEPIRIDE [Concomitant]
     Indication: DIABETES MELLITUS
     Dosage: ONE TABLET A DAY, 4 MG

REACTIONS (1)
  - CEREBROVASCULAR ACCIDENT [None]
